APPROVED DRUG PRODUCT: ATELVIA
Active Ingredient: RISEDRONATE SODIUM
Strength: 35MG
Dosage Form/Route: TABLET, DELAYED RELEASE;ORAL
Application: N022560 | Product #001 | TE Code: AB
Applicant: ALLERGAN PHARMACEUTICALS INTERNATIONAL LTD
Approved: Oct 8, 2010 | RLD: Yes | RS: Yes | Type: RX

PATENTS:
Patent 7645460 | Expires: Jan 9, 2028
Patent 7645459 | Expires: Jan 9, 2028
Patent 8246989 | Expires: Jan 16, 2026